FAERS Safety Report 7642151-4 (Version None)
Quarter: 2011Q3

REPORT INFORMATION
  Report Type: 
  Country: None (occurrence: None)
  Receive Date: 20110727
  Receipt Date: 20110727
  Transmission Date: 20111222
  Serious: No
  Sender: FDA-Public Use
  Company Number: None

PATIENT
  Age: 77 Year
  Sex: Female
  Weight: 70 kg

DRUGS (1)
  1. VANCOMYCIN [Suspect]
     Indication: PYREXIA
     Dosage: 1000 MG IV DRIP
     Route: 041
     Dates: start: 20070301

REACTIONS (4)
  - INFUSION RELATED REACTION [None]
  - PRURITUS [None]
  - SWELLING FACE [None]
  - ERYTHEMA [None]
